FAERS Safety Report 7737977-2 (Version None)
Quarter: 2011Q3

REPORT INFORMATION
  Report Type: 
  Country: None (occurrence: None)
  Receive Date: 20110908
  Receipt Date: 20110829
  Transmission Date: 20111222
  Serious: Yes (Hospitalization)
  Sender: FDA-Public Use
  Company Number: CO-ELI_LILLY_AND_COMPANY-CO201108009305

PATIENT
  Sex: Female

DRUGS (3)
  1. BYETTA [Suspect]
     Indication: TYPE 2 DIABETES MELLITUS
     Dosage: 5 UG, BID
     Route: 058
     Dates: start: 20110709, end: 20110809
  2. HUMULIN N [Concomitant]
     Dosage: 18 IU, EACH MORNING
  3. HUMULIN N [Concomitant]
     Dosage: 10 IU, EACH EVENING

REACTIONS (2)
  - OFF LABEL USE [None]
  - HYPOGLYCAEMIA [None]
